FAERS Safety Report 8479407-1 (Version None)
Quarter: 2012Q2

REPORT INFORMATION
  Report Type: 
  Country: None (occurrence: None)
  Receive Date: 20120629
  Receipt Date: 20120618
  Transmission Date: 20120825
  Serious: Yes (Hospitalization)
  Sender: FDA-Public Use
  Company Number: JP-VERTEX PHARMACEUTICALS INC.-AE-2012-006463

PATIENT
  Age: 63 Year
  Sex: Female

DRUGS (15)
  1. RIBAVIRIN [Concomitant]
     Route: 048
     Dates: start: 20120403, end: 20120424
  2. LANSOPRAZOLE [Concomitant]
     Route: 048
  3. RIBAVIRIN [Concomitant]
     Indication: HEPATITIS C
     Route: 048
     Dates: end: 20120402
  4. AMLODIPINE [Concomitant]
     Route: 048
     Dates: end: 20120522
  5. LEVOTHYROXINE SODIUM [Concomitant]
     Route: 048
  6. LASIX [Concomitant]
     Route: 048
     Dates: start: 20120427, end: 20120427
  7. ENALAPRIL MALEATE [Concomitant]
     Route: 048
     Dates: start: 20120429, end: 20120522
  8. REBAMIPIDE OD [Concomitant]
     Route: 048
  9. PEGINTRFERON ALFA-2B [Concomitant]
     Route: 058
     Dates: start: 20120508
  10. AMLODIPINE [Concomitant]
     Route: 048
  11. ENALAPRIL MALEATE [Concomitant]
     Route: 048
  12. LACB R [Concomitant]
     Route: 048
     Dates: start: 20120522, end: 20120529
  13. PEGINTRFERON ALFA-2B [Concomitant]
     Indication: HEPATITIS C
     Route: 058
     Dates: end: 20120424
  14. FLOMOX [Concomitant]
     Route: 048
     Dates: start: 20120522, end: 20120527
  15. TELAVIC (TELAPREVIR) [Suspect]
     Indication: HEPATITIS C
     Route: 048
     Dates: start: 20120313, end: 20120424

REACTIONS (1)
  - PYELONEPHRITIS [None]
